FAERS Safety Report 8299555-9 (Version None)
Quarter: 2012Q2

REPORT INFORMATION
  Report Type: 
  Country: None (occurrence: None)
  Receive Date: 20120419
  Receipt Date: 20120412
  Transmission Date: 20120825
  Serious: Yes (Hospitalization)
  Sender: FDA-Public Use
  Company Number: US-GLAXOSMITHKLINE-A0789348A

PATIENT
  Sex: Female

DRUGS (1)
  1. AVANDIA [Suspect]
     Indication: TYPE 2 DIABETES MELLITUS
     Dosage: 4U PER DAY
     Route: 048
     Dates: start: 20010101, end: 20100101

REACTIONS (4)
  - CORONARY ARTERY DISEASE [None]
  - CARDIAC DISORDER [None]
  - DYSPNOEA [None]
  - HEART INJURY [None]
